FAERS Safety Report 16757129 (Version 8)
Quarter: 2019Q4

REPORT INFORMATION
  Report Type: Report from Study
  Country: IT (occurrence: IT)
  Receive Date: 20190829
  Receipt Date: 20191204
  Transmission Date: 20200122
  Serious: Yes (Hospitalization, Other)
  Sender: FDA-Public Use
  Company Number: IT-GILEAD-2019-0418556

PATIENT
  Age: 40 Year
  Sex: Male

DRUGS (5)
  1. DEXAMETHASONE. [Concomitant]
     Active Substance: DEXAMETHASONE
     Dosage: UNK
  2. IMMUNOGLOBULIN [IMMUNOGLOBULINS NOS] [Concomitant]
     Active Substance: IMMUNE GLOBULIN NOS
     Indication: APLASIA
     Route: 042
  3. DEXAMETHASONE. [Concomitant]
     Active Substance: DEXAMETHASONE
     Dosage: 4 MG X 2
     Route: 042
     Dates: start: 20190823
  4. AXICABTAGENE CILOLEUCEL [Suspect]
     Active Substance: AXICABTAGENE CILOLEUCEL
     Indication: DIFFUSE LARGE B-CELL LYMPHOMA
     Dosage: UNK (ADMINISTERED IN ICU TO ACCURATELY MONITOR PATIENT^S CARDIAC FUNCTION)
     Route: 042
     Dates: start: 20190807, end: 20190807
  5. DEXAMETHASONE. [Concomitant]
     Active Substance: DEXAMETHASONE
     Dosage: 4 MG X 2
     Dates: end: 20190906

REACTIONS (11)
  - Confusional state [Recovering/Resolving]
  - Hypotension [Recovering/Resolving]
  - Migraine with aura [Recovered/Resolved]
  - Aphasia [Recovered/Resolved]
  - Neurotoxicity [Recovering/Resolving]
  - Cytopenia [Recovering/Resolving]
  - Cytokine release syndrome [Recovering/Resolving]
  - Diffuse large B-cell lymphoma [Not Recovered/Not Resolved]
  - Arrhythmia [Recovered/Resolved]
  - Tremor [Recovered/Resolved]
  - Pyrexia [Recovering/Resolving]

NARRATIVE: CASE EVENT DATE: 20190812
